FAERS Safety Report 15491775 (Version 2)
Quarter: 2018Q4

REPORT INFORMATION
  Report Type: Report from Study
  Country: PT (occurrence: PT)
  Receive Date: 20181012
  Receipt Date: 20181127
  Transmission Date: 20190205
  Serious: Yes (Life-Threatening, Other)
  Sender: FDA-Public Use
  Company Number: PT-AUROBINDO-AUR-APL-2018-049865

PATIENT
  Age: 37 Year
  Sex: Male

DRUGS (14)
  1. LAMIVUDINE. [Suspect]
     Active Substance: LAMIVUDINE
     Indication: CHRONIC HEPATITIS C
  2. LAMIVUDINE. [Suspect]
     Active Substance: LAMIVUDINE
     Indication: HIV INFECTION
  3. LAMIVUDINE. [Suspect]
     Active Substance: LAMIVUDINE
     Indication: HEPATITIS C
     Dosage: UNK
     Route: 065
  4. ABACAVIR. [Suspect]
     Active Substance: ABACAVIR
     Indication: HEPATITIS C
     Dosage: UNK
     Route: 065
  5. ZIDOVUDINE. [Suspect]
     Active Substance: ZIDOVUDINE
     Indication: CHRONIC HEPATITIS C
     Dosage: UNK
     Route: 065
  6. ABACAVIR. [Suspect]
     Active Substance: ABACAVIR
     Indication: HIV INFECTION
     Dosage: 1 ML OF TRIAMCINOLONE 40 MG INJECTED
     Route: 065
  7. SPIRONOLACTONE TABLET [Suspect]
     Active Substance: SPIRONOLACTONE
     Indication: HEPATITIS C
     Dosage: UNK
     Route: 065
  8. SPIRONOLACTONE TABLET [Suspect]
     Active Substance: SPIRONOLACTONE
     Indication: HIV INFECTION
     Dosage: UNK
     Route: 065
  9. ALCOHOL. [Suspect]
     Active Substance: ALCOHOL
     Indication: PRODUCT USED FOR UNKNOWN INDICATION
     Dosage: UNK
     Route: 065
  10. ZIDOVUDINE. [Suspect]
     Active Substance: ZIDOVUDINE
     Indication: HIV INFECTION
     Dosage: UNK
     Route: 065
  11. ZIDOVUDINE. [Suspect]
     Active Substance: ZIDOVUDINE
     Indication: HEPATITIS C
     Dosage: 1 ML OF TRIAMCINOLONE 40 MG INJECTED
     Route: 065
  12. ZIDOVUDINE. [Suspect]
     Active Substance: ZIDOVUDINE
     Indication: HIV INFECTION
  13. ABACAVIR. [Suspect]
     Active Substance: ABACAVIR
     Indication: CHRONIC HEPATITIS C
     Dosage: UNK
     Route: 065
  14. SPIRONOLACTONE TABLET [Suspect]
     Active Substance: SPIRONOLACTONE
     Indication: CHRONIC HEPATITIS C
     Dosage: UNK, 1 ML OF TRIAMCINOLONE 40 MG INJECTED ()
     Route: 065

REACTIONS (2)
  - Hepatic fibrosis [Unknown]
  - Drug-induced liver injury [Unknown]
